FAERS Safety Report 4679660-6 (Version None)
Quarter: 2005Q2

REPORT INFORMATION
  Report Type: 
  Country: None (occurrence: None)
  Receive Date: 20050602
  Receipt Date: 20050330
  Transmission Date: 20051028
  Serious: Yes (Other)
  Sender: FDA-Public Use
  Company Number: FRWYE546031MAR05

PATIENT
  Sex: Male

DRUGS (3)
  1. ENBREL [Suspect]
     Indication: PSORIATIC ARTHROPATHY
     Dosage: UNKNOWN
     Route: 058
     Dates: start: 20050205, end: 20050309
  2. ISONIAZID [Suspect]
     Route: 048
     Dates: start: 20050106, end: 20050309
  3. RIFAMPICIN [Suspect]
     Route: 048
     Dates: start: 20050106, end: 20050309

REACTIONS (2)
  - CYTOLYTIC HEPATITIS [None]
  - NEUTROPENIA [None]
